FAERS Safety Report 5894447-4 (Version None)
Quarter: 2008Q3

REPORT INFORMATION
  Report Type: 
  Country: None (occurrence: None)
  Receive Date: 20080923
  Receipt Date: 20080923
  Transmission Date: 20090109
  Serious: Yes (Hospitalization)
  Sender: FDA-Public Use
  Company Number: None

PATIENT
  Age: 83 Year
  Sex: Male
  Weight: 72.5 kg

DRUGS (2)
  1. WARFARIN SODIUM [Suspect]
     Dosage: 5 MG AT BEDTIME PO
     Route: 048
     Dates: start: 20080424, end: 20080428
  2. HEPARIN [Suspect]
     Dosage: 5000 UNITS TID SQ
     Route: 058
     Dates: start: 20080424, end: 20080428

REACTIONS (1)
  - HAEMOTHORAX [None]
